FAERS Safety Report 17418534 (Version 1)
Quarter: 2020Q1

REPORT INFORMATION
  Report Type: Spontaneous
  Country: FR (occurrence: FR)
  Receive Date: 20200214
  Receipt Date: 20200214
  Transmission Date: 20200409
  Serious: Yes (Life-Threatening, Other)
  Sender: FDA-Public Use
  Company Number: FR-GLAXOSMITHKLINE-FR2020024478

PATIENT
  Age: 64 Year
  Sex: Male
  Weight: 75 kg

DRUGS (10)
  1. QUETIAPINE. [Suspect]
     Active Substance: QUETIAPINE
     Indication: BIPOLAR DISORDER
     Dosage: IN TOTAL
     Route: 048
     Dates: start: 20200106, end: 20200106
  2. CLOMIPRAMINE HYDROCHLORIDE. [Suspect]
     Active Substance: CLOMIPRAMINE HYDROCHLORIDE
     Indication: DEPRESSION
     Dosage: IN TOTAL
     Route: 048
     Dates: start: 20200106, end: 20200106
  3. SULFARLEM [Concomitant]
     Active Substance: ANETHOLTRITHION
     Indication: PRODUCT USED FOR UNKNOWN INDICATION
     Dosage: 75 MG, QD
     Route: 048
  4. LAMICTAL [Suspect]
     Active Substance: LAMOTRIGINE
     Indication: BIPOLAR DISORDER
     Dosage: IN TOTAL
     Route: 048
     Dates: start: 20200106, end: 20200106
  5. MEDIATENSYL [Suspect]
     Active Substance: URAPIDIL
     Indication: HYPERTENSION
     Dosage: IN TOTAL
     Route: 048
     Dates: start: 20200106, end: 20200106
  6. XARELTO [Concomitant]
     Active Substance: RIVAROXABAN
     Indication: PRODUCT USED FOR UNKNOWN INDICATION
     Dosage: UNK
     Route: 048
  7. LERCANIDIPINE HYDROCHLORIDE [Suspect]
     Active Substance: LERCANIDIPINE HYDROCHLORIDE
     Indication: HYPERTENSION
     Dosage: IN TOTAL
     Route: 048
     Dates: start: 20200106, end: 20200106
  8. METFORMIN [Suspect]
     Active Substance: METFORMIN HYDROCHLORIDE
     Indication: TYPE 2 DIABETES MELLITUS
     Dosage: IN TOTAL
     Route: 048
     Dates: start: 20200106, end: 20200106
  9. TEMESTA [Concomitant]
     Indication: PRODUCT USED FOR UNKNOWN INDICATION
     Dosage: 2 DF, QD
     Route: 048
  10. THERALENE (ALIMEMAZINE + AMMONIUM + EPHEDRINE + ETHYLMORPHINE) [Concomitant]
     Indication: SLEEP DISORDER
     Dosage: 20 MG, QD
     Route: 048

REACTIONS (3)
  - Metabolic acidosis [Recovered/Resolved]
  - Coma [Recovered/Resolved]
  - Suicide attempt [Recovered/Resolved]

NARRATIVE: CASE EVENT DATE: 20200106
